FAERS Safety Report 18028308 (Version 1)
Quarter: 2020Q3

REPORT INFORMATION
  Report Type: Spontaneous
  Country: US (occurrence: US)
  Receive Date: 20200715
  Receipt Date: 20200715
  Transmission Date: 20201103
  Serious: Yes (Other)
  Sender: FDA-Public Use
  Company Number: US-009507513-2007USA005272

PATIENT
  Sex: Female
  Weight: 90.8 kg

DRUGS (1)
  1. NEXPLANON [Suspect]
     Active Substance: ETONOGESTREL
     Dosage: IMPLANT, LEFT ARM (NON?DOMINANT ARM)
     Route: 059
     Dates: start: 201801, end: 20200708

REACTIONS (3)
  - Menstruation irregular [Unknown]
  - Complication associated with device [Recovered/Resolved]
  - Device dislocation [Recovered/Resolved]
